FAERS Safety Report 19790890 (Version 3)
Quarter: 2021Q4

REPORT INFORMATION
  Report Type: Report from Study
  Country: BR (occurrence: BR)
  Receive Date: 20210906
  Receipt Date: 20211201
  Transmission Date: 20220303
  Serious: Yes (Other)
  Sender: FDA-Public Use
  Company Number: BR-ABBVIE-21K-020-4066502-00

PATIENT
  Sex: Female

DRUGS (1)
  1. RINVOQ [Suspect]
     Active Substance: UPADACITINIB
     Indication: Rheumatoid arthritis
     Dosage: UNSPECIFIC DOSE
     Route: 048

REACTIONS (9)
  - Eye haemorrhage [Not Recovered/Not Resolved]
  - Intentional product misuse [Unknown]
  - Mass [Recovering/Resolving]
  - Visual impairment [Not Recovered/Not Resolved]
  - Pruritus [Recovering/Resolving]
  - Hypoglycaemia [Unknown]
  - Hyperglycaemia [Unknown]
  - Blood cholesterol increased [Unknown]
  - Dermatitis [Recovering/Resolving]
